FAERS Safety Report 15500112 (Version 1)
Quarter: 2018Q4

REPORT INFORMATION
  Report Type: Spontaneous
  Country: US (occurrence: US)
  Receive Date: 20181015
  Receipt Date: 20181015
  Transmission Date: 20190205
  Serious: Yes (Other)
  Sender: FDA-Public Use
  Company Number: US-ELI_LILLY_AND_COMPANY-US201810005011

PATIENT
  Sex: Male

DRUGS (3)
  1. BASAGLAR [Suspect]
     Active Substance: INSULIN GLARGINE
     Indication: TYPE 2 DIABETES MELLITUS
     Dosage: 10 U, DAILY(EACH NIGHT)
     Route: 058
     Dates: start: 201805
  2. NOVOLIN [Concomitant]
     Active Substance: INSULIN HUMAN
     Indication: TYPE 2 DIABETES MELLITUS
     Dosage: UNK, PRN
  3. BASAGLAR [Suspect]
     Active Substance: INSULIN GLARGINE
     Dosage: 10 U, DAILY(EACH NIGHT)
     Route: 058
     Dates: start: 201805

REACTIONS (7)
  - Retinopathy [Unknown]
  - Injection site mass [Unknown]
  - Hyperhidrosis [Unknown]
  - Dizziness [Unknown]
  - Pruritus [Unknown]
  - Tremor [Unknown]
  - Chills [Unknown]
